FAERS Safety Report 21196201 (Version 2)
Quarter: 2022Q3

REPORT INFORMATION
  Report Type: Report from Study
  Country: BR (occurrence: BR)
  Receive Date: 20220810
  Receipt Date: 20220818
  Transmission Date: 20221027
  Serious: Yes (Other)
  Sender: FDA-Public Use
  Company Number: BR-JNJFOC-20220815937

PATIENT
  Age: 5 Decade
  Sex: Male
  Weight: 61 kg

DRUGS (1)
  1. INFLIXIMAB [Suspect]
     Active Substance: INFLIXIMAB
     Indication: Ankylosing spondylitis
     Route: 041
     Dates: start: 20210614

REACTIONS (2)
  - Tuberculosis [Unknown]
  - Arthritis [Unknown]

NARRATIVE: CASE EVENT DATE: 20210901
